FAERS Safety Report 14439750 (Version 1)
Quarter: 2018Q1

REPORT INFORMATION
  Report Type: Spontaneous
  Country: US (occurrence: US)
  Receive Date: 20180125
  Receipt Date: 20180125
  Transmission Date: 20180509
  Serious: No
  Sender: FDA-Public Use
  Company Number: US-LEXICON PHARMACEUTICALS, INC-17-1606-01361

PATIENT
  Sex: Female

DRUGS (30)
  1. TELOTRISTAT ETHYL [Suspect]
     Active Substance: TELOTRISTAT ETHYL
     Indication: CARCINOID TUMOUR OF THE SMALL BOWEL
     Route: 048
     Dates: start: 20170406, end: 201705
  2. TELOTRISTAT ETHYL [Suspect]
     Active Substance: TELOTRISTAT ETHYL
  3. PROCTOSOL [Concomitant]
  4. CRANBERRY EXTRACT [Concomitant]
     Active Substance: CRANBERRY JUICE
  5. DICYCLOMINE [Concomitant]
     Active Substance: DICYCLOMINE HYDROCHLORIDE
  6. LORATIDINE [Concomitant]
     Active Substance: LORATADINE
  7. ONDANSETRON [Concomitant]
     Active Substance: ONDANSETRON
  8. OXYCODONE-ACETAMINOPHEN [Concomitant]
     Active Substance: ACETAMINOPHEN\OXYCODONE HYDROCHLORIDE
  9. PROPRANOLOL [Concomitant]
     Active Substance: PROPRANOLOL HYDROCHLORIDE
  10. SANDOSTATIN LAR DEPOT [Concomitant]
     Active Substance: OCTREOTIDE ACETATE
  11. ENBREL [Concomitant]
     Active Substance: ETANERCEPT
  12. LEVOTHYROXINE. [Concomitant]
     Active Substance: LEVOTHYROXINE
  13. MULTIVITAMINS/FLUORIDE [Concomitant]
  14. NEURONTIN [Concomitant]
     Active Substance: GABAPENTIN
  15. WELLBUTRIN [Concomitant]
     Active Substance: BUPROPION HYDROCHLORIDE
     Route: 048
  16. GAS-X [Concomitant]
     Active Substance: DIMETHICONE
  17. LORAZEPAM. [Concomitant]
     Active Substance: LORAZEPAM
  18. PROMETHAZINE [Concomitant]
     Active Substance: PROMETHAZINE\PROMETHAZINE HYDROCHLORIDE
  19. SUMATRIPTAN. [Concomitant]
     Active Substance: SUMATRIPTAN
  20. WELCHOL [Concomitant]
     Active Substance: COLESEVELAM HYDROCHLORIDE
  21. SAVELLA [Concomitant]
     Active Substance: MILNACIPRAN HYDROCHLORIDE
  22. SERTRALINE [Concomitant]
     Active Substance: SERTRALINE HYDROCHLORIDE
  23. VITAMIN D3 COMPLETE [Concomitant]
  24. TELOTRISTAT ETHYL [Suspect]
     Active Substance: TELOTRISTAT ETHYL
     Route: 048
     Dates: start: 201705
  25. BLACK COHOSH EXTRACT [Concomitant]
  26. TRAZODONE [Concomitant]
     Active Substance: TRAZODONE HYDROCHLORIDE
  27. VITAMIN C [Concomitant]
     Active Substance: ASCORBIC ACID
  28. DULERA [Concomitant]
     Active Substance: FORMOTEROL FUMARATE DIHYDRATE\MOMETASONE FUROATE
  29. LOSARTAN POTASSIUM. [Concomitant]
     Active Substance: LOSARTAN POTASSIUM
  30. VITAMIN B [Concomitant]
     Active Substance: VITAMIN B

REACTIONS (4)
  - Nasopharyngitis [Unknown]
  - Fatigue [Unknown]
  - Cough [Unknown]
  - Off label use [Not Recovered/Not Resolved]

NARRATIVE: CASE EVENT DATE: 2017
